FAERS Safety Report 5557992-7 (Version None)
Quarter: 2007Q4

REPORT INFORMATION
  Report Type: 
  Country: None (occurrence: None)
  Receive Date: 20071211
  Receipt Date: 20071204
  Transmission Date: 20080405
  Serious: Yes (Death)
  Sender: FDA-Public Use
  Company Number: 2007SP024248

PATIENT

DRUGS (2)
  1. TEMODAL [Suspect]
     Indication: MALIGNANT GLIOMA
     Dosage: 150 MG/M2;PO; 200 MG/M2;PO
     Route: 048
     Dates: start: 20070718
  2. TEMODAL [Suspect]
     Indication: MALIGNANT GLIOMA
     Dosage: 150 MG/M2;PO; 200 MG/M2;PO
     Route: 048
     Dates: start: 20070801

REACTIONS (1)
  - DEATH [None]
